FAERS Safety Report 7677404-7 (Version None)
Quarter: 2011Q3

REPORT INFORMATION
  Report Type: 
  Country: None (occurrence: None)
  Receive Date: 20110811
  Receipt Date: 20100622
  Transmission Date: 20111222
  Serious: No
  Sender: FDA-Public Use
  Company Number: US-BRISTOL-MYERS SQUIBB COMPANY-15162647

PATIENT
  Age: 41 Year
  Sex: Female

DRUGS (4)
  1. REYATAZ [Suspect]
     Indication: HIV INFECTION
  2. RITONAVIR [Concomitant]
  3. TRUVADA [Concomitant]
  4. LIPITOR [Concomitant]

REACTIONS (1)
  - RASH [None]
